FAERS Safety Report 4988163-0 (Version None)
Quarter: 2006Q2

REPORT INFORMATION
  Report Type: 
  Country: None (occurrence: None)
  Receive Date: 20060425
  Receipt Date: 20060412
  Transmission Date: 20061013
  Serious: Yes (Hospitalization, Other)
  Sender: FDA-Public Use
  Company Number: 2006051327

PATIENT
  Age: 60 Year
  Sex: Male
  Weight: 100 kg

DRUGS (11)
  1. CAMPTOSAR [Suspect]
     Indication: OESOPHAGEAL CARCINOMA
     Dosage: (400 MG, EVERY 14 DAYS)
  2. FLUOROURACIL [Suspect]
     Indication: OESOPHAGEAL CARCINOMA
  3. LEUCOVORIN CALCIUM [Suspect]
     Indication: OESOPHAGEAL CARCINOMA
  4. DILTIAZEM [Suspect]
     Indication: ILL-DEFINED DISORDER
     Dosage: ORAL
     Route: 048
  5. ATACAND [Suspect]
     Indication: ILL-DEFINED DISORDER
     Dosage: ORAL
     Route: 048
  6. NEXIUM [Concomitant]
  7. GAVISCON [Concomitant]
  8. MONOKET [Concomitant]
  9. PRIMPERAN TAB [Concomitant]
  10. KYTRIL [Concomitant]
  11. BETAPRED [Concomitant]

REACTIONS (3)
  - ATRIAL FIBRILLATION [None]
  - DYSPNOEA EXERTIONAL [None]
  - HYPOTENSION [None]
